FAERS Safety Report 22203542 (Version 1)
Quarter: 2023Q2

REPORT INFORMATION
  Report Type: Spontaneous
  Country: US (occurrence: US)
  Receive Date: 20230412
  Receipt Date: 20230412
  Transmission Date: 20230721
  Serious: No
  Sender: FDA-Public Use
  Company Number: US-JNJFOC-20200121095

PATIENT
  Age: 83 Year
  Sex: Female
  Weight: 47.670 kg

DRUGS (1)
  1. IMODIUM A-D [Suspect]
     Active Substance: LOPERAMIDE HYDROCHLORIDE
     Indication: Abdominal pain
     Dosage: 20 OZ ONCE YESTERDAY
     Route: 048
     Dates: start: 20200112, end: 20200112

REACTIONS (2)
  - Expired product administered [Unknown]
  - Product label issue [Unknown]
